FAERS Safety Report 16931452 (Version 1)
Quarter: 2019Q4

REPORT INFORMATION
  Report Type: Spontaneous
  Country: BR (occurrence: BR)
  Receive Date: 20191017
  Receipt Date: 20191017
  Transmission Date: 20200122
  Serious: Yes (Other)
  Sender: FDA-Public Use
  Company Number: BR-GLAXOSMITHKLINE-BR2019182900

PATIENT
  Age: 67 Year
  Sex: Female

DRUGS (1)
  1. SERETIDE [Suspect]
     Active Substance: FLUTICASONE PROPIONATE\SALMETEROL XINAFOATE
     Indication: PRODUCT USED FOR UNKNOWN INDICATION
     Dosage: UNK, BID
     Dates: end: 20191004

REACTIONS (14)
  - Drug interaction [Unknown]
  - Dyspnoea [Unknown]
  - Product dose omission [Unknown]
  - Myalgia [Recovering/Resolving]
  - Pneumonia [Unknown]
  - Sputum discoloured [Recovered/Resolved with Sequelae]
  - Feeling abnormal [Unknown]
  - Increased bronchial secretion [Unknown]
  - Bone pain [Recovering/Resolving]
  - Condition aggravated [Unknown]
  - Malaise [Unknown]
  - Pain [Not Recovered/Not Resolved]
  - Cough [Unknown]
  - Gait inability [Unknown]

NARRATIVE: CASE EVENT DATE: 201908
